FAERS Safety Report 11990667 (Version 4)
Quarter: 2018Q1

REPORT INFORMATION
  Report Type: Spontaneous
  Country: US (occurrence: US)
  Receive Date: 20160202
  Receipt Date: 20180315
  Transmission Date: 20180508
  Serious: Yes (Hospitalization, Disabling, Other)
  Sender: FDA-Public Use
  Company Number: US-ENDO PHARMACEUTICALS INC.-2016-000681

PATIENT
  Age: 53 Year
  Sex: Male
  Weight: 90.7 kg

DRUGS (1)
  1. TESTIM [Suspect]
     Active Substance: TESTOSTERONE
     Indication: ANDROGEN REPLACEMENT THERAPY
     Dosage: 50 MG, DAILY
     Route: 062
     Dates: start: 20101028, end: 20110307

REACTIONS (12)
  - Acute myocardial infarction [Not Recovered/Not Resolved]
  - Hernia [Unknown]
  - Carpal tunnel syndrome [Unknown]
  - Arthropathy [Unknown]
  - Coronary artery disease [Not Recovered/Not Resolved]
  - Atrial fibrillation [Not Recovered/Not Resolved]
  - Product administered at inappropriate site [Unknown]
  - Chest pain [Unknown]
  - Carpal tunnel syndrome [Unknown]
  - Angina pectoris [Unknown]
  - Arthropathy [Unknown]
  - Pericarditis [Unknown]

NARRATIVE: CASE EVENT DATE: 20101118
